FAERS Safety Report 8553670-0 (Version None)
Quarter: 2012Q3

REPORT INFORMATION
  Report Type: 
  Country: None (occurrence: None)
  Receive Date: 20120731
  Receipt Date: 20111124
  Transmission Date: 20120928
  Serious: Yes (Other)
  Sender: FDA-Public Use
  Company Number: CO-PFIZER INC-2012182862

PATIENT
  Age: 70 Year
  Sex: Male

DRUGS (6)
  1. METOPROLOL TARTRATE [Concomitant]
     Dosage: 100 MG EVERY 12 HOURS
  2. GEMFIBROZIL [Concomitant]
     Dosage: 60 MG EVERY 24 HOURS
  3. OLMESARTAN MEDOXOMIL AND HYDROCHLOROTHIZIDE [Suspect]
     Indication: HYPERTENSION
     Dosage: [OLMESARTAN MEDOXOMIL 20]/[HYDROCHLOROTHIAZIDE 12.5 MG] EVERY 24 HOURS
  4. AMLODIPINE [Concomitant]
     Dosage: 5 MG EVERY 24 HOURS
  5. LIPITOR [Suspect]
     Indication: DYSLIPIDAEMIA
     Dosage: 10 MG EVERY 24 HOURS
  6. ASPIRIN [Concomitant]
     Dosage: 100 MG EVERY 24 HOURS

REACTIONS (3)
  - RENAL FAILURE CHRONIC [None]
  - HYPERTENSIVE EMERGENCY [None]
  - LEUKOCYTURIA [None]
